FAERS Safety Report 18509940 (Version 1)
Quarter: 2020Q4

REPORT INFORMATION
  Report Type: Spontaneous
  Country: FI (occurrence: FI)
  Receive Date: 20201117
  Receipt Date: 20201117
  Transmission Date: 20210114
  Serious: Yes (Death)
  Sender: FDA-Public Use
  Company Number: FI-ROCHE-2711035

PATIENT
  Age: 53 Year
  Sex: Female

DRUGS (3)
  1. AVASTIN [Suspect]
     Active Substance: BEVACIZUMAB
     Indication: LUNG NEOPLASM MALIGNANT
     Dosage: 500,MG,CYCLICAL
     Route: 042
     Dates: start: 20200529, end: 20200827
  2. DOCETAXEL. [Concomitant]
     Active Substance: DOCETAXEL
     Indication: LUNG NEOPLASM MALIGNANT
     Dosage: 70,MG,CYCLICAL
     Route: 042
     Dates: start: 20200529, end: 20200827
  3. IRINOTECAN [Concomitant]
     Active Substance: IRINOTECAN
     Indication: LUNG NEOPLASM MALIGNANT
     Dosage: 500,MG,CYCLICAL
     Route: 042
     Dates: start: 20200529, end: 20200827

REACTIONS (5)
  - Nasal septum perforation [Fatal]
  - Depressed level of consciousness [Fatal]
  - Cardio-respiratory arrest [Fatal]
  - Epistaxis [Fatal]
  - Haemorrhage [Fatal]

NARRATIVE: CASE EVENT DATE: 20200910
